FAERS Safety Report 9258477 (Version 1)
Quarter: 2013Q2

REPORT INFORMATION
  Report Type: Spontaneous
  Country: US (occurrence: None)
  Receive Date: 20130425
  Receipt Date: 20130425
  Transmission Date: 20140414
  Serious: Yes (Death)
  Sender: FDA-Public Use
  Company Number: None

PATIENT
  Age: 79 Year
  Sex: Female
  Weight: 77 kg

DRUGS (5)
  1. ASPIRIN [Suspect]
     Indication: TROPONIN INCREASED
     Route: 054
     Dates: start: 20121102, end: 20121108
  2. HEPARIN [Suspect]
     Route: 058
     Dates: start: 20121108, end: 20121108
  3. VALPROIC ACID [Suspect]
  4. METOPROLOL [Suspect]
  5. LIDOCAINE [Suspect]

REACTIONS (4)
  - Metabolic encephalopathy [None]
  - Delirium [None]
  - Depressed level of consciousness [None]
  - Haemorrhage intracranial [None]
